FAERS Safety Report 5755580-0 (Version None)
Quarter: 2008Q2

REPORT INFORMATION
  Report Type: 
  Country: None (occurrence: None)
  Receive Date: 20080602
  Receipt Date: 20080522
  Transmission Date: 20081010
  Serious: Yes (Hospitalization)
  Sender: FDA-Public Use
  Company Number: GB-MERCK-0608GBR00112

PATIENT
  Age: 72 Year
  Sex: Male
  Weight: 88 kg

DRUGS (8)
  1. HYDROCORTONE [Suspect]
     Route: 048
     Dates: start: 20060511
  2. HYDROCORTONE [Suspect]
     Route: 048
     Dates: start: 19760701
  3. HYDROCORTONE [Suspect]
     Route: 048
     Dates: start: 20060518
  4. ASPIRIN [Concomitant]
     Route: 065
     Dates: start: 20030301
  5. ATORVASTATIN CALCIUM [Concomitant]
     Route: 065
     Dates: start: 20030301
  6. CLOPIDOGREL BISULFATE [Concomitant]
     Route: 065
  7. FLUDROCORTISONE [Concomitant]
     Route: 065
     Dates: start: 19760701
  8. RAMIPRIL [Concomitant]
     Route: 065

REACTIONS (5)
  - BLOOD GLUCOSE INCREASED [None]
  - FOOD POISONING [None]
  - HYPERGLYCAEMIA [None]
  - MALAISE [None]
  - PYREXIA [None]
